FAERS Safety Report 9226864 (Version 1)
Quarter: 2013Q2

REPORT INFORMATION
  Report Type: Spontaneous
  Country: US (occurrence: US)
  Receive Date: 20130412
  Receipt Date: 20130412
  Transmission Date: 20140414
  Serious: Yes (Other)
  Sender: FDA-Public Use
  Company Number: US-JNJFOC-20130402386

PATIENT
  Sex: 0

DRUGS (3)
  1. REMICADE [Suspect]
     Indication: BONE DISORDER
     Route: 042
  2. REMICADE [Suspect]
     Indication: AUTOIMMUNE DISORDER
     Route: 042
  3. REMICADE [Suspect]
     Indication: CROHN^S DISEASE
     Route: 042

REACTIONS (2)
  - Drug ineffective [Unknown]
  - Adverse event [Unknown]
